FAERS Safety Report 21333105 (Version 1)
Quarter: 2022Q3

REPORT INFORMATION
  Report Type: Report from Study
  Country: IN (occurrence: IN)
  Receive Date: 20220914
  Receipt Date: 20220914
  Transmission Date: 20221026
  Serious: Yes (Hospitalization)
  Sender: FDA-Public Use
  Company Number: IN-GSK-IN2022120752

PATIENT

DRUGS (19)
  1. BELANTAMAB MAFODOTIN [Suspect]
     Active Substance: BELANTAMAB MAFODOTIN
     Indication: Plasma cell myeloma
     Dosage: 125.4 MG/KG, 1D, DOSE OF GSK2857916, ROUTE INTRAVENOUS
     Route: 042
     Dates: start: 20220809, end: 20220809
  2. DOMPERIDONE + RABEPRAZOLE [Concomitant]
     Indication: Gastrooesophageal reflux disease
     Dosage: 50 MG, SINGLE (FREQUENCY ONCE)
     Route: 048
     Dates: start: 20220809, end: 20220815
  3. DOMPERIDONE + RABEPRAZOLE [Concomitant]
     Dosage: 50 MG, BID (FREQUENCY TWICE DAILY)
     Route: 048
     Dates: start: 20220818
  4. ACYCLOVIR [Concomitant]
     Active Substance: ACYCLOVIR
     Indication: Infection
     Dosage: 400 MG, SINGLE (FREQUENCY ONCE)
     Route: 048
     Dates: start: 20220809, end: 20220815
  5. ACYCLOVIR [Concomitant]
     Active Substance: ACYCLOVIR
     Dosage: 400 MG, SINGLE (FREQUENCY ONCE)
     Route: 048
     Dates: start: 20220818
  6. CEFOPERAZONE SODIUM\SULBACTAM SODIUM [Concomitant]
     Active Substance: CEFOPERAZONE SODIUM\SULBACTAM SODIUM
     Indication: Bacterial infection
     Dosage: 1500 MG, BID (FREQUENCY TWICE DAILY)
     Route: 042
     Dates: start: 20220815, end: 20220818
  7. LACTULOSE [Concomitant]
     Active Substance: LACTULOSE
     Indication: Constipation
     Dosage: 10 G, QID (FREQUENCY FOUR TIMES DAILY)
     Route: 048
     Dates: start: 20220809, end: 20220815
  8. LACTULOSE [Concomitant]
     Active Substance: LACTULOSE
     Dosage: 10 G, QID (FREQUENCY FOUR TIMES DAILY)
     Route: 048
     Dates: start: 20220818
  9. PANTOPRAZOLE [Concomitant]
     Active Substance: PANTOPRAZOLE
     Indication: Gastrooesophageal reflux disease
     Dosage: 40 MG, BID (FREQUENCY TWICE DAILY)
     Route: 048
     Dates: start: 20220815, end: 20220818
  10. CHLORHEXIDINE GLUCONATE [Concomitant]
     Active Substance: CHLORHEXIDINE GLUCONATE
     Indication: Oral infection
     Dosage: 0.2 DF, QID (FREQUENCY FOUR TIMES DAILY)
     Route: 048
     Dates: start: 20220809, end: 20220815
  11. CHLORHEXIDINE GLUCONATE [Concomitant]
     Active Substance: CHLORHEXIDINE GLUCONATE
     Dosage: 0.2 DF, QID (FREQUENCY FOUR TIMES DAILY)
     Route: 048
     Dates: start: 20220818
  12. ONDANSETRON [Concomitant]
     Active Substance: ONDANSETRON
     Indication: Nausea
     Dosage: 04 MG, BID (FREQUENCY TWICE DAILY)
     Route: 048
     Dates: start: 20220815, end: 20220818
  13. ONDANSETRON [Concomitant]
     Active Substance: ONDANSETRON
     Indication: Vomiting
  14. DEXAMETHASONE [Concomitant]
     Active Substance: DEXAMETHASONE
     Indication: Inflammation
     Dosage: 04 MG, SINGLE (FREQUENCY ONCE)
     Route: 042
     Dates: start: 20220815, end: 20220816
  15. METFORMIN [Concomitant]
     Active Substance: METFORMIN HYDROCHLORIDE
     Indication: Diabetes mellitus
     Dosage: 500 MG, BID (FREQUENCY TWICE DAILY)
     Route: 048
     Dates: start: 20220816, end: 20220818
  16. ACETAMINOPHEN [Concomitant]
     Active Substance: ACETAMINOPHEN
     Indication: Pyrexia
     Dosage: 2 ML, QID (FREQUENCY EVERY 6 HOURS)
     Route: 042
     Dates: start: 20220815, end: 20220815
  17. ACETAMINOPHEN [Concomitant]
     Active Substance: ACETAMINOPHEN
     Dosage: 2 ML, SINGLE (FREQUENCY ONCE)
     Route: 042
     Dates: start: 20220816, end: 20220817
  18. ZOLEDRONIC ACID [Concomitant]
     Active Substance: ZOLEDRONIC ACID
     Indication: Osteoporosis
     Dosage: 04 MG, SINGLE (FREQUENCY ONCE)
     Route: 042
     Dates: start: 20220817, end: 20220818
  19. CEFIXIME [Concomitant]
     Active Substance: CEFIXIME
     Indication: Bacterial infection
     Dosage: 200 MG, BID (FREQUENCY TWICE DAILY)
     Route: 048
     Dates: start: 20220818, end: 20220821

REACTIONS (1)
  - Lower respiratory tract infection [Recovered/Resolved]

NARRATIVE: CASE EVENT DATE: 20220810
